FAERS Safety Report 25460837 (Version 1)
Quarter: 2025Q2

REPORT INFORMATION
  Report Type: Spontaneous
  Country: CN (occurrence: CN)
  Receive Date: 20250620
  Receipt Date: 20250620
  Transmission Date: 20250717
  Serious: Yes (Hospitalization, Other)
  Sender: PFIZER
  Company Number: CN-PFIZER INC-PV202500071486

PATIENT
  Age: 44 Year
  Sex: Male
  Weight: 55 kg

DRUGS (2)
  1. EPIRUBICIN HYDROCHLORIDE [Suspect]
     Active Substance: EPIRUBICIN HYDROCHLORIDE
     Indication: Hepatic lesion
     Dosage: 40 MG, 1X/DAY, ARTERIAL ADMINISTRATION
     Dates: start: 20250604, end: 20250604
  2. IODINATED OIL [Concomitant]
     Indication: Scan
     Dosage: 10 ML, 1X/DAY, ARTERIAL ADMINISTRATION
     Dates: start: 20250604, end: 20250604

REACTIONS (4)
  - Transaminases increased [Recovering/Resolving]
  - Off label use [Unknown]
  - Off label use [Unknown]
  - Product use issue [Unknown]

NARRATIVE: CASE EVENT DATE: 20250604
